FAERS Safety Report 8587447-7 (Version None)
Quarter: 2012Q3

REPORT INFORMATION
  Report Type: 
  Country: None (occurrence: None)
  Receive Date: 20120810
  Receipt Date: 20120125
  Transmission Date: 20120928
  Serious: Yes (Other)
  Sender: FDA-Public Use
  Company Number: US-ASTRAZENECA-2012SE05486

PATIENT
  Age: 86 Year
  Sex: Female
  Weight: 73 kg

DRUGS (6)
  1. ARIMIDEX [Suspect]
     Route: 048
     Dates: start: 20101101
  2. PROCARDIA XL [Concomitant]
     Route: 048
  3. LIPITOR [Concomitant]
     Route: 048
  4. ECOTRIN EC [Concomitant]
     Route: 048
  5. BONIVA [Concomitant]
  6. DIOVAN [Concomitant]
     Route: 048

REACTIONS (1)
  - BREAST CANCER STAGE I [None]
